FAERS Safety Report 13131110 (Version 15)
Quarter: 2019Q2

REPORT INFORMATION
  Report Type: Report from Study
  Country: JP (occurrence: JP)
  Receive Date: 20170119
  Receipt Date: 20190504
  Transmission Date: 20190711
  Serious: Yes (Death, Life-Threatening, Hospitalization, Disabling, Other)
  Sender: FDA-Public Use
  Company Number: PHJP2017JP001812

PATIENT
  Age: 53 Year
  Sex: Female

DRUGS (8)
  1. ZYKADIA [Suspect]
     Active Substance: CERITINIB
     Indication: NON-SMALL CELL LUNG CANCER STAGE IV
     Dosage: 750 MG, QD
     Route: 048
     Dates: start: 20161024, end: 20161118
  2. CEFTRIAXONE. [Concomitant]
     Active Substance: CEFTRIAXONE
     Indication: WHITE BLOOD CELL COUNT INCREASED
  3. CEFTRIAXONE. [Concomitant]
     Active Substance: CEFTRIAXONE
     Indication: C-REACTIVE PROTEIN INCREASED
  4. PREDONINE [Concomitant]
     Active Substance: PREDNISOLONE
     Indication: NON-SMALL CELL LUNG CANCER STAGE IV
     Dosage: 7.5 MG, UNK
     Route: 048
  5. ZYKADIA [Suspect]
     Active Substance: CERITINIB
     Dosage: 750 MG, QD
     Route: 048
     Dates: start: 20161125, end: 20161213
  6. CEFTRIAXONE. [Concomitant]
     Active Substance: CEFTRIAXONE
     Indication: ESCHERICHIA URINARY TRACT INFECTION
     Dosage: UNK
     Route: 065
  7. CEFTRIAXONE. [Concomitant]
     Active Substance: CEFTRIAXONE
     Indication: PYREXIA
  8. TAKECAB [Concomitant]
     Active Substance: VONOPRAZAN FUMURATE
     Indication: PROPHYLAXIS
     Dosage: 20 MG, UNK
     Route: 048

REACTIONS (20)
  - Cholestasis [Unknown]
  - Nausea [Unknown]
  - Headache [Unknown]
  - Large intestine perforation [Recovered/Resolved with Sequelae]
  - Cholangitis [Recovered/Resolved]
  - White blood cell count increased [Unknown]
  - Hepatic enzyme increased [Not Recovered/Not Resolved]
  - Hyponatraemia [Unknown]
  - Biliary tract disorder [Unknown]
  - Biloma [Unknown]
  - Liver disorder [Fatal]
  - Lymphoma [Fatal]
  - Cholangitis [Not Recovered/Not Resolved]
  - Inflammation [Unknown]
  - Sinus bradycardia [Unknown]
  - Dilatation intrahepatic duct acquired [Unknown]
  - C-reactive protein increased [Unknown]
  - Blood bilirubin increased [Unknown]
  - Second primary malignancy [Fatal]
  - Pyrexia [Not Recovered/Not Resolved]

NARRATIVE: CASE EVENT DATE: 20161104
